FAERS Safety Report 8148812 (Version 4)
Quarter: 2012Q4

REPORT INFORMATION
  Report Type: 
  Country: US (occurrence: US)
  Receive Date: 20110922
  Receipt Date: 20121205
  Transmission Date: 20130627
  Serious: No
  Sender: FDA-Public Use
  Company Number: US-ASTRAZENECA-2010SE47945

PATIENT
  Age: 66 Year
  Sex: Female
  Weight: 72.6 kg

DRUGS (20)
  1. NEXIUM [Suspect]
     Route: 048
     Dates: start: 1997
  2. TOPROL XL [Suspect]
     Indication: HYPERTENSION
     Route: 048
  3. SEROQUEL [Suspect]
     Indication: BIPOLAR DISORDER
     Route: 048
     Dates: start: 1997, end: 2009
  4. SEROQUEL [Suspect]
     Indication: BIPOLAR II DISORDER
     Route: 048
     Dates: start: 1997, end: 2009
  5. SEROQUEL [Suspect]
     Indication: BIPOLAR DISORDER
     Route: 048
     Dates: start: 2009
  6. SEROQUEL [Suspect]
     Indication: BIPOLAR II DISORDER
     Route: 048
     Dates: start: 2009
  7. SEROQUEL [Suspect]
     Indication: BIPOLAR DISORDER
     Dosage: GENERIC
     Route: 048
  8. SEROQUEL [Suspect]
     Indication: BIPOLAR II DISORDER
     Dosage: GENERIC
     Route: 048
  9. SEROQUEL [Suspect]
     Indication: BIPOLAR DISORDER
     Route: 048
  10. SEROQUEL [Suspect]
     Indication: BIPOLAR II DISORDER
     Route: 048
  11. SEROQUEL [Suspect]
     Indication: BIPOLAR DISORDER
     Route: 048
  12. SEROQUEL [Suspect]
     Indication: BIPOLAR II DISORDER
     Route: 048
  13. SEROQUEL [Suspect]
     Indication: BIPOLAR DISORDER
     Route: 048
  14. SEROQUEL [Suspect]
     Indication: BIPOLAR II DISORDER
     Route: 048
  15. SIMVASTATIN [Concomitant]
     Indication: BLOOD CHOLESTEROL ABNORMAL
  16. LEVOTHYROXINE [Concomitant]
     Indication: THYROID DISORDER
  17. MELOXICAM [Concomitant]
  18. ALLOPURINOL [Concomitant]
  19. DEXALINT [Concomitant]
  20. TERBUFALINE [Concomitant]

REACTIONS (13)
  - Back pain [Recovered/Resolved]
  - Head injury [Unknown]
  - Amnesia [Not Recovered/Not Resolved]
  - Neck pain [Unknown]
  - Spousal abuse [Unknown]
  - Memory impairment [Unknown]
  - Adverse event [Unknown]
  - Panic attack [Unknown]
  - Anxiety disorder [Unknown]
  - Post-traumatic stress disorder [Unknown]
  - Stress [Unknown]
  - Depression [Unknown]
  - Drug dose omission [Unknown]
